FAERS Safety Report 7730575-6 (Version None)
Quarter: 2011Q3

REPORT INFORMATION
  Report Type: 
  Country: None (occurrence: None)
  Receive Date: 20110906
  Receipt Date: 20110829
  Transmission Date: 20111222
  Serious: Yes (Other)
  Sender: FDA-Public Use
  Company Number: US-PFIZER INC-2011200791

PATIENT
  Age: 75 Year
  Sex: Female

DRUGS (1)
  1. METHYLPREDNISOLONE ACETATE [Suspect]
     Dosage: 80 MG, UNK

REACTIONS (3)
  - HALLUCINATION, VISUAL [None]
  - DELUSION [None]
  - HALLUCINATION, AUDITORY [None]
